FAERS Safety Report 16172195 (Version 1)
Quarter: 2019Q2

REPORT INFORMATION
  Report Type: Other
  Country: TR (occurrence: TR)
  Receive Date: 20190409
  Receipt Date: 20190409
  Transmission Date: 20190711
  Serious: Yes (Other)
  Sender: FDA-Public Use
  Company Number: TR-FDC LIMITED-2065507

PATIENT
  Age: 12 Year
  Sex: Female

DRUGS (3)
  1. CASPOFUNGIN [Concomitant]
     Active Substance: CASPOFUNGIN
     Route: 065
  2. CIPROFLOXACIN. [Suspect]
     Active Substance: CIPROFLOXACIN
     Indication: PRODUCT USED FOR UNKNOWN INDICATION
     Route: 065
  3. VORICONAZOLE. [Suspect]
     Active Substance: VORICONAZOLE
     Route: 042

REACTIONS (2)
  - Ventricular extrasystoles [Recovered/Resolved]
  - Electrocardiogram QT prolonged [Recovered/Resolved]
